FAERS Safety Report 10355957 (Version 1)
Quarter: 2014Q3

REPORT INFORMATION
  Report Type: Spontaneous
  Country: CA (occurrence: CA)
  Receive Date: 20140801
  Receipt Date: 20140801
  Transmission Date: 20150326
  Serious: Yes (Life-Threatening, Hospitalization, Disabling)
  Sender: FDA-Public Use
  Company Number: CA-ROCHE-1443316

PATIENT
  Age: 61 Year
  Sex: Female
  Weight: 59 kg

DRUGS (5)
  1. INCIVEK [Suspect]
     Active Substance: TELAPREVIR
     Indication: PRODUCT USED FOR UNKNOWN INDICATION
     Dosage: 29 DAYS THERAPY DURATION
     Route: 065
  2. PEGASYS [Suspect]
     Active Substance: PEGINTERFERON ALFA-2A
     Indication: PRODUCT USED FOR UNKNOWN INDICATION
     Dosage: 29 DAYS THERAPY DURATION
     Route: 030
  3. RABEPRAZOLE [Concomitant]
     Active Substance: RABEPRAZOLE
  4. RIBAVIRIN. [Suspect]
     Active Substance: RIBAVIRIN
     Indication: PRODUCT USED FOR UNKNOWN INDICATION
     Dosage: 29 DAYS THERAPY DURATION
     Route: 048
  5. LAMOTRIGINE. [Concomitant]
     Active Substance: LAMOTRIGINE

REACTIONS (12)
  - Alanine aminotransferase decreased [Recovered/Resolved]
  - Asthenia [Recovered/Resolved]
  - International normalised ratio increased [Recovered/Resolved]
  - Jaundice [Recovered/Resolved]
  - Lipase increased [Recovered/Resolved]
  - White blood cell count decreased [Recovered/Resolved]
  - Gamma-glutamyltransferase increased [Recovered/Resolved]
  - Anaemia [Recovered/Resolved]
  - Aspartate aminotransferase increased [Recovered/Resolved]
  - Pancreatitis acute [Recovered/Resolved]
  - Platelet count decreased [Recovered/Resolved]
  - Renal failure acute [Recovered/Resolved]
